FAERS Safety Report 13096632 (Version 1)
Quarter: 2017Q1

REPORT INFORMATION
  Report Type: Spontaneous
  Country: US (occurrence: US)
  Receive Date: 20170106
  Receipt Date: 20170106
  Transmission Date: 20170428
  Serious: Yes (Life-Threatening, Hospitalization)
  Sender: FDA-Public Use
  Company Number: None

PATIENT
  Age: 49 Year
  Sex: Female
  Weight: 54.5 kg

DRUGS (1)
  1. METHOTREXATE. [Suspect]
     Active Substance: METHOTREXATE
     Indication: RHEUMATOID ARTHRITIS
     Route: 048
     Dates: start: 20160928, end: 20170105

REACTIONS (6)
  - Incorrect dose administered [None]
  - Pancytopenia [None]
  - Inappropriate schedule of drug administration [None]
  - Odynophagia [None]
  - Dehydration [None]
  - Aphthous ulcer [None]

NARRATIVE: CASE EVENT DATE: 20170106
